FAERS Safety Report 11911530 (Version 2)
Quarter: 2016Q1

REPORT INFORMATION
  Report Type: Spontaneous
  Country: IN (occurrence: IN)
  Receive Date: 20160112
  Receipt Date: 20160205
  Transmission Date: 20160526
  Serious: Yes (Death, Hospitalization)
  Sender: FDA-Public Use
  Company Number: IN-PFIZER INC-2016009753

PATIENT
  Age: 58 Year
  Sex: Female

DRUGS (1)
  1. AROMASIN [Suspect]
     Active Substance: EXEMESTANE
     Indication: BREAST CANCER
     Dosage: 25 MG, 1X/DAY
     Route: 048
     Dates: start: 20151114

REACTIONS (3)
  - Dehydration [Unknown]
  - Diarrhoea [Unknown]
  - Cardiac arrest [Fatal]

NARRATIVE: CASE EVENT DATE: 20151220
